FAERS Safety Report 11092468 (Version 1)
Quarter: 2015Q2

REPORT INFORMATION
  Report Type: Spontaneous
  Country: BR (occurrence: BR)
  Receive Date: 20150506
  Receipt Date: 20150506
  Transmission Date: 20150821
  Serious: Yes (Other)
  Sender: FDA-Public Use
  Company Number: BR-ROCHE-1571393

PATIENT
  Sex: Female
  Weight: 37 kg

DRUGS (1)
  1. BONVIVA [Suspect]
     Active Substance: IBANDRONATE SODIUM
     Indication: OSTEOPOROSIS
     Route: 065

REACTIONS (4)
  - Diabetes mellitus [Not Recovered/Not Resolved]
  - Renal disorder [Not Recovered/Not Resolved]
  - Osteoporosis [Not Recovered/Not Resolved]
  - Diabetic retinopathy [Not Recovered/Not Resolved]
